FAERS Safety Report 6227443-8 (Version None)
Quarter: 2009Q2

REPORT INFORMATION
  Report Type: 
  Country: None (occurrence: None)
  Receive Date: 20090610
  Receipt Date: 20090610
  Transmission Date: 20091009
  Serious: Yes (Life-Threatening, Hospitalization, Other)
  Sender: FDA-Public Use
  Company Number: None

PATIENT
  Age: 18 Year
  Sex: Female
  Weight: 81.6475 kg

DRUGS (1)
  1. CLONAZEPAM [Suspect]

REACTIONS (8)
  - AGGRESSION [None]
  - CARDIAC ARREST [None]
  - DRUG DEPENDENCE [None]
  - INTENTIONAL SELF-INJURY [None]
  - LACERATION [None]
  - OVERDOSE [None]
  - PHYSICAL ASSAULT [None]
  - SUICIDE ATTEMPT [None]
